FAERS Safety Report 4987861-2 (Version None)
Quarter: 2006Q2

REPORT INFORMATION
  Report Type: 
  Country: None (occurrence: None)
  Receive Date: 20060427
  Receipt Date: 20060427
  Transmission Date: 20061013
  Serious: Yes (Hospitalization)
  Sender: FDA-Public Use
  Company Number: None

PATIENT
  Age: 41 Year
  Sex: Male

DRUGS (4)
  1. GEMCITABINE [Suspect]
     Indication: SARCOMA
  2. SOLU-MEDROL [Concomitant]
  3. ZANTAC [Concomitant]
  4. BENADRLY [Concomitant]

REACTIONS (3)
  - HYPERSENSITIVITY [None]
  - PYREXIA [None]
  - RASH [None]
